FAERS Safety Report 7691912-4 (Version None)
Quarter: 2011Q3

REPORT INFORMATION
  Report Type: 
  Country: None (occurrence: None)
  Receive Date: 20110818
  Receipt Date: 20110817
  Transmission Date: 20111222
  Serious: Yes (Hospitalization, Other)
  Sender: FDA-Public Use
  Company Number: US-BAYER-2011-073870

PATIENT
  Age: 59 Year
  Sex: Female

DRUGS (1)
  1. CIPROFLOXACIN [Suspect]
     Indication: PAIN
     Dosage: UNK

REACTIONS (5)
  - VIPOMA [None]
  - DIARRHOEA [None]
  - METASTASES TO LYMPH NODES [None]
  - METASTASES TO LIVER [None]
  - PAIN [None]
